FAERS Safety Report 7989239-6 (Version None)
Quarter: 2011Q4

REPORT INFORMATION
  Report Type: 
  Country: None (occurrence: None)
  Receive Date: 20111007
  Receipt Date: 20110628
  Transmission Date: 20120403
  Serious: No
  Sender: FDA-Public Use
  Company Number: 2011HGS-002375

PATIENT

DRUGS (1)
  1. BENLYSTA [Suspect]
     Indication: SYSTEMIC LUPUS ERYTHEMATOSUS
     Dosage: INTRAVENOUS DRIP
     Route: 041
     Dates: start: 20110601

REACTIONS (4)
  - CHEST DISCOMFORT [None]
  - ABDOMINAL PAIN [None]
  - RENAL FAILURE [None]
  - INFUSION RELATED REACTION [None]
